FAERS Safety Report 8926996 (Version 1)
Quarter: 2012Q4

REPORT INFORMATION
  Report Type: 
  Country: JP (occurrence: JP)
  Receive Date: 20121127
  Receipt Date: 20121127
  Transmission Date: 20130627
  Serious: Yes (Other)
  Sender: FDA-Public Use
  Company Number: JP-PFIZER INC-2012139366

PATIENT
  Age: 62 Year
  Sex: Female

DRUGS (6)
  1. LYRICA [Suspect]
     Indication: POST HERPETIC NEURALGIA
     Dosage: 150 mg, 2x/day
     Route: 048
     Dates: start: 20120329, end: 20120522
  2. UNSPECIFIED INGREDIENT [Suspect]
     Dosage: 2.5 g, 3x/day
     Route: 048
     Dates: start: 20120421, end: 20120522
  3. HALCION [Concomitant]
     Indication: INSOMNIA
     Dosage: 0.25 mg, 1x/day
     Route: 048
     Dates: start: 20120426
  4. TRYPTIZOL [Concomitant]
     Indication: NEURALGIA
     Dosage: 25 mg, 1x/day
     Route: 048
     Dates: start: 20120421, end: 20120522
  5. VALTREX [Concomitant]
     Indication: HERPES ZOSTER
     Dosage: UNK
     Route: 048
     Dates: start: 20120329, end: 20120522
  6. VOLTAREN [Concomitant]
     Indication: HERPES ZOSTER
     Dosage: 50mg
     Route: 054
     Dates: start: 20120329, end: 20120522

REACTIONS (6)
  - Hyperprolactinaemia [Recovering/Resolving]
  - Breast swelling [Recovered/Resolved]
  - Breast pain [Recovering/Resolving]
  - Diarrhoea [Unknown]
  - Blood potassium decreased [Unknown]
  - Breast disorder [Unknown]
